FAERS Safety Report 8572206-1 (Version None)
Quarter: 2012Q3

REPORT INFORMATION
  Report Type: 
  Country: None (occurrence: None)
  Receive Date: 20120806
  Receipt Date: 20120726
  Transmission Date: 20120928
  Serious: Yes (Hospitalization)
  Sender: FDA-Public Use
  Company Number: US-ASTELLAS-2012US004554

PATIENT
  Sex: Female
  Weight: 62 kg

DRUGS (9)
  1. THYMOGLOBULIN [Suspect]
     Indication: RENAL TRANSPLANT
     Dosage: 100 MG, UNKNOWN/D
     Route: 042
     Dates: start: 20120501, end: 20120502
  2. PROGRAF [Suspect]
     Indication: RENAL TRANSPLANT
     Dosage: 5 MG, TOTAL DOSE
     Route: 065
     Dates: start: 20120502, end: 20120502
  3. AMLODIPINE [Concomitant]
     Indication: HYPERTENSION
     Dosage: UNK
     Route: 065
  4. PAROXETINE [Concomitant]
     Indication: DEPRESSION
     Dosage: UNK
     Route: 065
  5. METHYLPREDNISOLONE [Concomitant]
     Indication: RENAL TRANSPLANT
     Dosage: UNK
     Route: 065
     Dates: start: 20120501
  6. PROGRAF [Suspect]
     Dosage: 4 MG, TOTAL DOSE
     Route: 065
     Dates: start: 20120503, end: 20120503
  7. BLINDED ASP8597 [Suspect]
     Indication: RENAL TRANSPLANT
     Dosage: 600 UG/KG, TOTAL DOSE
     Route: 042
     Dates: start: 20120501, end: 20120501
  8. PROGRAF [Suspect]
     Dosage: 2 MG, TOTAL DOSE
     Route: 065
     Dates: start: 20120504, end: 20120504
  9. SENSIPAR [Concomitant]
     Indication: HYPERPARATHYROIDISM SECONDARY
     Dosage: UNK
     Route: 065

REACTIONS (3)
  - THROMBOCYTOPENIA [None]
  - COMPLICATIONS OF TRANSPLANTED KIDNEY [None]
  - THROMBOCYTOPENIC PURPURA [None]
